FAERS Safety Report 21577817 (Version 1)
Quarter: 2022Q4

REPORT INFORMATION
  Report Type: Spontaneous
  Country: AU (occurrence: AU)
  Receive Date: 20221110
  Receipt Date: 20221110
  Transmission Date: 20230113
  Serious: Yes (Other)
  Sender: FDA-Public Use
  Company Number: AU-AMGEN-AUSSP2022189154

PATIENT
  Age: 55 Year
  Sex: Female

DRUGS (3)
  1. FILGRASTIM [Suspect]
     Active Substance: FILGRASTIM
     Indication: Product used for unknown indication
     Dosage: UNK
     Route: 065
  2. FLUDARABINE [Concomitant]
     Active Substance: FLUDARABINE PHOSPHATE
     Dosage: UNK
  3. MELPHALAN [Concomitant]
     Active Substance: MELPHALAN
     Dosage: UNK

REACTIONS (5)
  - Bone marrow failure [Unknown]
  - Cytomegalovirus infection [Unknown]
  - Graft versus host disease in lung [Unknown]
  - Transplant dysfunction [Unknown]
  - Drug ineffective [Unknown]
